FAERS Safety Report 25363338 (Version 1)
Quarter: 2025Q2

REPORT INFORMATION
  Report Type: Spontaneous
  Country: US (occurrence: None)
  Receive Date: 20250526
  Receipt Date: 20250526
  Transmission Date: 20250717
  Serious: No
  Sender: FDA-CTU
  Company Number: None

PATIENT
  Age: 63 Year
  Sex: Female
  Weight: 48.6 kg

DRUGS (3)
  1. RECLAST [Suspect]
     Active Substance: ZOLEDRONIC ACID
     Indication: Osteoporosis
     Route: 042
     Dates: start: 20250108, end: 20250108
  2. INSULIN NOS [Concomitant]
     Active Substance: INSULIN NOS
  3. wheel hair caltrate [Concomitant]

REACTIONS (6)
  - Back pain [None]
  - Arthralgia [None]
  - Musculoskeletal chest pain [None]
  - Musculoskeletal pain [None]
  - Spinal pain [None]
  - Arthralgia [None]

NARRATIVE: CASE EVENT DATE: 20250108
